FAERS Safety Report 8322513-2 (Version None)
Quarter: 2012Q2

REPORT INFORMATION
  Report Type: 
  Country: None (occurrence: None)
  Receive Date: 20120430
  Receipt Date: 20100430
  Transmission Date: 20120825
  Serious: No
  Sender: FDA-Public Use
  Company Number: US-TEVA-2010000683

PATIENT
  Sex: Female

DRUGS (6)
  1. PRAVACHOL [Concomitant]
  2. NUVIGIL [Suspect]
     Indication: SLEEP APNOEA SYNDROME
     Dosage: 150 MILLIGRAM;
     Route: 048
     Dates: start: 20100101
  3. CYMBALTA [Concomitant]
  4. METFORMIN HCL [Concomitant]
  5. LEVOTHYROXINE SODIUM [Concomitant]
  6. CELEBREX [Concomitant]

REACTIONS (2)
  - TACHYPHRENIA [None]
  - DRUG EFFECT INCREASED [None]
